FAERS Safety Report 7555741-4 (Version None)
Quarter: 2011Q2

REPORT INFORMATION
  Report Type: 
  Country: None (occurrence: None)
  Receive Date: 20110617
  Receipt Date: 20110609
  Transmission Date: 20111010
  Serious: Yes (Death)
  Sender: FDA-Public Use
  Company Number: JP-ASTRAZENECA-2011SE22802

PATIENT
  Age: 81 Year
  Sex: Female

DRUGS (10)
  1. DIOVAN [Concomitant]
     Indication: HYPERTENSION
     Route: 048
     Dates: end: 20110413
  2. LASIX [Concomitant]
  3. ZONISAMIDE [Concomitant]
     Indication: CEREBRAL HAEMORRHAGE
     Route: 048
     Dates: start: 20100201, end: 20110413
  4. SEROQUEL [Suspect]
     Indication: RESTLESSNESS
     Route: 048
     Dates: end: 20110408
  5. SPIRONOLACTONE [Concomitant]
  6. SEROQUEL [Suspect]
     Indication: DELIRIUM
     Route: 048
     Dates: end: 20110408
  7. RISPERDAL [Suspect]
     Indication: SCHIZOPHRENIA
     Route: 048
     Dates: end: 20110408
  8. YOKUKAN-SAN [Concomitant]
     Route: 048
  9. SEROQUEL [Suspect]
     Indication: SCHIZOPHRENIA
     Route: 048
     Dates: end: 20110408
  10. ROCEPHIN [Concomitant]

REACTIONS (3)
  - HYPOGLYCAEMIA [None]
  - ASPARTATE AMINOTRANSFERASE INCREASED [None]
  - ALANINE AMINOTRANSFERASE INCREASED [None]
